FAERS Safety Report 17471349 (Version 1)
Quarter: 2020Q1

REPORT INFORMATION
  Report Type: Spontaneous
  Country: FR (occurrence: FR)
  Receive Date: 20200227
  Receipt Date: 20200227
  Transmission Date: 20200409
  Serious: Yes (Death)
  Sender: FDA-Public Use
  Company Number: FR-SUN PHARMACEUTICAL INDUSTRIES LTD-2020RR-238454

PATIENT
  Age: 30 Year
  Sex: Female

DRUGS (3)
  1. VENLAFAXINE [Suspect]
     Active Substance: VENLAFAXINE HYDROCHLORIDE
     Indication: INTENTIONAL OVERDOSE
     Dosage: ()
     Route: 065
     Dates: start: 201901, end: 201901
  2. BROMAZEPAM [Suspect]
     Active Substance: BROMAZEPAM
     Indication: INTENTIONAL OVERDOSE
     Dosage: ()
     Route: 065
     Dates: start: 201901, end: 201901
  3. TRAMADOL BASE [Suspect]
     Active Substance: TRAMADOL
     Indication: INTENTIONAL OVERDOSE
     Dosage: ()
     Route: 065
     Dates: start: 201901, end: 201901

REACTIONS (2)
  - Poisoning deliberate [Fatal]
  - Drug use disorder [Fatal]

NARRATIVE: CASE EVENT DATE: 201901
